FAERS Safety Report 6851114-8 (Version None)
Quarter: 2010Q3

REPORT INFORMATION
  Report Type: 
  Country: None (occurrence: None)
  Receive Date: 20100716
  Receipt Date: 20071025
  Transmission Date: 20110219
  Serious: No
  Sender: FDA-Public Use
  Company Number: US-PFIZER INC-2007091222

PATIENT
  Sex: Male
  Weight: 136.1 kg

DRUGS (10)
  1. CHANTIX [Suspect]
     Indication: SMOKING CESSATION THERAPY
     Dates: start: 20071017
  2. GLUCOVANCE [Concomitant]
  3. LIPITOR [Concomitant]
  4. IMDUR [Concomitant]
  5. NIFEDIPINE [Concomitant]
  6. COZAAR [Concomitant]
  7. ENALAPRIL MALEATE [Concomitant]
  8. CARDURA [Concomitant]
  9. DEMADEX [Concomitant]
  10. CRESTOR [Concomitant]

REACTIONS (1)
  - DRUG INEFFECTIVE [None]
